FAERS Safety Report 23929351 (Version 2)
Quarter: 2025Q3

REPORT INFORMATION
  Report Type: Spontaneous
  Country: US (occurrence: US)
  Receive Date: 20240601
  Receipt Date: 20250703
  Transmission Date: 20251020
  Serious: No
  Sender: RADIUS PHARM
  Company Number: US-RADIUS HEALTH INC.-2024US000328

PATIENT
  Age: 70 Year
  Sex: Female

DRUGS (1)
  1. TYMLOS [Suspect]
     Active Substance: ABALOPARATIDE
     Indication: Osteoporosis
     Route: 058
     Dates: start: 20240113

REACTIONS (14)
  - Headache [Unknown]
  - Hypertension [Unknown]
  - Injection site bruising [Unknown]
  - Tachycardia [Unknown]
  - Arthralgia [Unknown]
  - Pain in extremity [Recovering/Resolving]
  - Sleep disorder [Unknown]
  - Muscle spasms [Unknown]
  - Bone pain [Unknown]
  - Needle issue [Unknown]
  - Injection site haemorrhage [Unknown]
  - Heart rate increased [Not Recovered/Not Resolved]
  - Wrong technique in product usage process [Recovered/Resolved]
  - Product quality issue [Recovered/Resolved]

NARRATIVE: CASE EVENT DATE: 20240708
